FAERS Safety Report 21341567 (Version 2)
Quarter: 2022Q4

REPORT INFORMATION
  Report Type: Spontaneous
  Country: JP (occurrence: JP)
  Receive Date: 20220916
  Receipt Date: 20221019
  Transmission Date: 20230112
  Serious: Yes (Death, Other)
  Sender: FDA-Public Use
  Company Number: JP-BRISTOL-MYERS SQUIBB COMPANY-2022-105668

PATIENT
  Age: 6 Decade
  Sex: Female

DRUGS (1)
  1. ELIQUIS [Suspect]
     Active Substance: APIXABAN
     Indication: Embolism venous
     Route: 048

REACTIONS (6)
  - Lung adenocarcinoma [Fatal]
  - Disseminated intravascular coagulation [Fatal]
  - Pulmonary embolism [Fatal]
  - Haemoptysis [Fatal]
  - Pleural effusion [Unknown]
  - Condition aggravated [Unknown]
